FAERS Safety Report 8411470-6 (Version None)
Quarter: 2012Q2

REPORT INFORMATION
  Report Type: 
  Country: None (occurrence: None)
  Receive Date: 20120605
  Receipt Date: 20120508
  Transmission Date: 20120825
  Serious: No
  Sender: FDA-Public Use
  Company Number: US-AMGEN-USASP2012029032

PATIENT
  Age: 63 Year
  Sex: Male

DRUGS (3)
  1. PREDNISONE [Concomitant]
     Dosage: UNK
  2. LIPITOR [Concomitant]
     Dosage: 1 MG, UNK
  3. ENBREL [Suspect]
     Indication: RHEUMATOID ARTHRITIS
     Dosage: 50 MG, QWK
     Dates: start: 20120201

REACTIONS (2)
  - HEPATIC ENZYME INCREASED [None]
  - MUSCULOSKELETAL STIFFNESS [None]
